FAERS Safety Report 8702879 (Version 2)
Quarter: 2013Q4

REPORT INFORMATION
  Report Type: Spontaneous
  Country: US (occurrence: US)
  Receive Date: 20120803
  Receipt Date: 20131101
  Transmission Date: 20140711
  Serious: Yes (Hospitalization)
  Sender: FDA-Public Use
  Company Number: US-009507513-1207USA011835

PATIENT
  Age: 22 Year
  Sex: Female

DRUGS (7)
  1. CANCIDAS [Suspect]
     Indication: OROPHARYNGEAL CANDIDIASIS
     Route: 042
  2. CANCIDAS [Suspect]
     Indication: OESOPHAGITIS
  3. ABACAVIR SULFATE [Concomitant]
     Indication: HIV INFECTION
  4. LAMIVUDINE [Concomitant]
     Indication: HIV INFECTION
  5. RALTEGRAVIR [Concomitant]
     Indication: HIV INFECTION
  6. ETRAVIRINE [Concomitant]
     Indication: HIV INFECTION
  7. SULFAMETHOXAZOLE (+) TRIMETHOPRIM [Concomitant]

REACTIONS (1)
  - Drug ineffective [Unknown]
